FAERS Safety Report 7536336-5 (Version None)
Quarter: 2011Q2

REPORT INFORMATION
  Report Type: 
  Country: None (occurrence: None)
  Receive Date: 20110609
  Receipt Date: 20110606
  Transmission Date: 20111010
  Serious: Yes (Other)
  Sender: FDA-Public Use
  Company Number: HR-PFIZER INC-2011111744

PATIENT
  Sex: Female

DRUGS (6)
  1. CIPROFLOXACIN [Suspect]
     Indication: SCHNITZLER'S SYNDROME
     Dosage: 500 MG, 2X/DAY
     Route: 048
  2. IBUPROFEN [Concomitant]
     Dosage: 400 MG, 2X/DAY
  3. ANAKINRA [Suspect]
     Indication: SCHNITZLER'S SYNDROME
     Dosage: 1 X 100 MG
     Route: 058
  4. IBUPROFEN [Concomitant]
     Dosage: 400 MG, 3X/DAY
  5. DOXYCYCLINE [Suspect]
     Indication: SCHNITZLER'S SYNDROME
     Dosage: 100 MG, 2X/DAY
     Route: 048
  6. DESLORATADINE [Concomitant]
     Dosage: 1 X 5 MG

REACTIONS (3)
  - HEPATIC LESION [None]
  - BONE PAIN [None]
  - ERYTHEMA [None]
